FAERS Safety Report 5131456-7 (Version None)
Quarter: 2006Q4

REPORT INFORMATION
  Report Type: 
  Country: None (occurrence: None)
  Receive Date: 20061016
  Receipt Date: 20061005
  Transmission Date: 20070319
  Serious: Yes (Other)
  Sender: FDA-Public Use
  Company Number: HQWYE732606OCT06

PATIENT
  Age: 38 Year
  Sex: Female
  Weight: 65.83 kg

DRUGS (7)
  1. EFFEXOR [Suspect]
     Indication: DEPRESSION
     Dosage: 75 MG 2X PER  1 DAY, ORAL
     Route: 048
     Dates: start: 20060601, end: 20060920
  2. ENBREL [Concomitant]
  3. DOLOBID [Concomitant]
  4. SYNTHROID [Concomitant]
  5. FOLIC ACID [Concomitant]
  6. VITAMINS NOS (VITAMINS NOS) [Concomitant]
  7. EFFEXOR XR [Suspect]
     Indication: DEPRESSION
     Dosage: 37.5MG  1 PER 1 DAY
     Route: 048
     Dates: start: 20060921, end: 20061002

REACTIONS (10)
  - ACTIVITIES OF DAILY LIVING IMPAIRED [None]
  - CRYING [None]
  - DRUG WITHDRAWAL SYNDROME [None]
  - EYE MOVEMENT DISORDER [None]
  - FEELING ABNORMAL [None]
  - HEAD TITUBATION [None]
  - HYPERSOMNIA [None]
  - IMPAIRED WORK ABILITY [None]
  - NAUSEA [None]
  - VERTIGO [None]
